FAERS Safety Report 20907891 (Version 1)
Quarter: 2022Q2

REPORT INFORMATION
  Report Type: Spontaneous
  Country: US (occurrence: US)
  Receive Date: 20220602
  Receipt Date: 20220602
  Transmission Date: 20220721
  Serious: No
  Sender: FDA-Public Use
  Company Number: US-UPSHER-SMITH LABORATORIES, LLC-2021USL00448

PATIENT
  Sex: Female
  Weight: 136.05 kg

DRUGS (2)
  1. NYAMYC [Suspect]
     Active Substance: NYSTATIN
     Indication: Paralysis
     Dosage: UNK
     Dates: end: 202106
  2. NYAMYC [Suspect]
     Active Substance: NYSTATIN
     Indication: Skin disorder

REACTIONS (3)
  - Reaction to excipient [Recovered/Resolved]
  - Pruritus [Recovered/Resolved]
  - Rash [Recovered/Resolved]
